FAERS Safety Report 7706366-9 (Version None)
Quarter: 2011Q3

REPORT INFORMATION
  Report Type: 
  Country: None (occurrence: None)
  Receive Date: 20110824
  Receipt Date: 20110816
  Transmission Date: 20111222
  Serious: Yes (Other)
  Sender: FDA-Public Use
  Company Number: CA-PFIZER INC-2011189109

PATIENT
  Age: 77 Year
  Sex: Male

DRUGS (3)
  1. XALATAN [Suspect]
     Indication: GLAUCOMA
     Dosage: 1 GTT IN RIGHT EYE, 1X/DAY
     Route: 047
     Dates: start: 20080101
  2. LIPITOR [Concomitant]
     Indication: BLOOD CHOLESTEROL
     Dosage: 20 MG, 1X/DAY
  3. RABEPRAZOLE SODIUM [Concomitant]
     Indication: GASTRIC DISORDER
     Dosage: 20 MG, 1X/DAY

REACTIONS (1)
  - EYE LASER SURGERY [None]
